FAERS Safety Report 13177127 (Version 1)
Quarter: 2017Q1

REPORT INFORMATION
  Report Type: Report from Study
  Country: US (occurrence: US)
  Receive Date: 20170201
  Receipt Date: 20170201
  Transmission Date: 20170428
  Serious: Yes (Hospitalization)
  Sender: FDA-Public Use
  Company Number: US-IPSEN-CABO-16007173

PATIENT
  Age: 45 Year
  Sex: Male

DRUGS (10)
  1. COMETRIQ [Suspect]
     Active Substance: CABOZANTINIB S-MALATE
     Dosage: 100 MG, QD
     Route: 048
     Dates: start: 201612
  2. OXYCODONE [Concomitant]
     Active Substance: OXYCODONE
  3. COMETRIQ [Suspect]
     Active Substance: CABOZANTINIB S-MALATE
     Indication: THYROID CANCER
     Dosage: 140 MG, QD
     Route: 048
     Dates: start: 20160815, end: 20160908
  4. OMEPRAZOLE. [Concomitant]
     Active Substance: OMEPRAZOLE
  5. LIDOCAINE VISCOUS [Concomitant]
     Active Substance: LIDOCAINE HYDROCHLORIDE
  6. DECADRON [Concomitant]
     Active Substance: DEXAMETHASONE
  7. MS CONTIN [Concomitant]
     Active Substance: MORPHINE SULFATE
  8. COMETRIQ [Suspect]
     Active Substance: CABOZANTINIB S-MALATE
     Dosage: 80 MG, QD
     Route: 048
     Dates: start: 20160915, end: 20160926
  9. COMETRIQ [Suspect]
     Active Substance: CABOZANTINIB S-MALATE
     Dosage: 80 MG, QD
     Route: 048
     Dates: start: 2016
  10. XARELTO [Suspect]
     Active Substance: RIVAROXABAN

REACTIONS (8)
  - Genital rash [Unknown]
  - Dyspepsia [Unknown]
  - Chalazion [Unknown]
  - Malaise [Unknown]
  - Upper gastrointestinal haemorrhage [Recovered/Resolved]
  - Large intestine polyp [Recovered/Resolved]
  - Pancreatitis [Recovering/Resolving]
  - Thrombosis [Recovered/Resolved]

NARRATIVE: CASE EVENT DATE: 20160923
